FAERS Safety Report 8963712 (Version 1)
Quarter: 2012Q4

REPORT INFORMATION
  Report Type: 
  Country: US (occurrence: US)
  Receive Date: 20121214
  Receipt Date: 20121214
  Transmission Date: 20130627
  Serious: Yes (Other)
  Sender: FDA-Public Use
  Company Number: US-PAR PHARMACEUTICAL, INC-2012SCPR004755

PATIENT

DRUGS (1)
  1. FENTANYL TRANSDERMAL SYSTEM [Suspect]
     Indication: METASTATIC PAIN
     Dosage: 100 mcg/h, Unknown
     Route: 062

REACTIONS (3)
  - Pain [Unknown]
  - Drug ineffective [Unknown]
  - Product quality issue [Unknown]
